FAERS Safety Report 9281485 (Version 2)
Quarter: 2013Q2

REPORT INFORMATION
  Report Type: Spontaneous
  Country: DE (occurrence: DE)
  Receive Date: 20130509
  Receipt Date: 20130530
  Transmission Date: 20140414
  Serious: Yes (Other)
  Sender: FDA-Public Use
  Company Number: DE-TEVA-402529GER

PATIENT
  Age: 78 Year
  Sex: Female
  Weight: 83 kg

DRUGS (11)
  1. PANTOPRAZOLE [Suspect]
     Route: 065
  2. VERAPAMIL [Concomitant]
     Dosage: 80 MILLIGRAM DAILY;
     Route: 065
  3. FUROSEMIDE [Concomitant]
     Dosage: 40 MILLIGRAM DAILY;
     Route: 065
  4. ENALAPRIL [Concomitant]
     Dosage: 10 MILLIGRAM DAILY;
     Route: 065
  5. SILDENAFIL [Concomitant]
     Dosage: 40 MILLIGRAM DAILY;
     Route: 065
  6. DIGITOXIN [Concomitant]
     Dosage: .07 MILLIGRAM DAILY;
     Route: 065
  7. METOCLOPRAMIDE [Concomitant]
     Route: 065
  8. CITALOPRAM [Concomitant]
     Dosage: 20 MILLIGRAM DAILY;
     Route: 065
  9. MIRTAZAPINE [Concomitant]
     Dosage: 15 MILLIGRAM DAILY;
     Route: 065
  10. PHENPROCOUMON [Concomitant]
     Route: 065
  11. CLARITHROMYCIN, AMOXICILLIN [Concomitant]
     Route: 065

REACTIONS (2)
  - Renal failure acute [Recovered/Resolved]
  - Nephritis allergic [Recovering/Resolving]
